FAERS Safety Report 6905101-1 (Version None)
Quarter: 2010Q3

REPORT INFORMATION
  Report Type: 
  Country: None (occurrence: None)
  Receive Date: 20100804
  Receipt Date: 20090925
  Transmission Date: 20110219
  Serious: Yes (Hospitalization)
  Sender: FDA-Public Use
  Company Number: US-PFIZER INC-2009247463

PATIENT
  Sex: Female
  Weight: 105.23 kg

DRUGS (12)
  1. LYRICA [Suspect]
     Indication: FIBROMYALGIA
     Dates: start: 20060401, end: 20071101
  2. DULOXETINE HYDROCHLORIDE [Suspect]
     Indication: FIBROMYALGIA
     Dosage: 60 MG, 1X/DAY
  3. DULOXETINE HYDROCHLORIDE [Suspect]
     Dosage: 30 MG, 1X/DAY
     Dates: start: 20090701
  4. WELCHOL [Concomitant]
     Indication: GALLBLADDER DISORDER
     Dosage: 2500 MG, 1X/DAY
  5. LEVOTHYROXINE [Concomitant]
     Indication: THYROID DISORDER
     Dosage: 150 UG, 1X/DAY
  6. TRAMADOL [Concomitant]
     Dosage: 50 MG, 2X/DAY
  7. IBUPROFEN [Concomitant]
     Dosage: UNK
  8. TYLENOL (CAPLET) [Concomitant]
     Dosage: UNK
  9. BENTYL [Concomitant]
     Indication: GASTROINTESTINAL PAIN
     Dosage: UNK
  10. VESICARE [Concomitant]
     Indication: HYPERTONIC BLADDER
     Dosage: 10 MG, UNK
  11. PROCHLORPERAZINE [Concomitant]
     Dosage: UNK
  12. LODINE [Concomitant]

REACTIONS (9)
  - CELLULITIS [None]
  - DRUG INTOLERANCE [None]
  - FLUID RETENTION [None]
  - HYPERSENSITIVITY [None]
  - INSOMNIA [None]
  - NAUSEA [None]
  - PAIN IN EXTREMITY [None]
  - URINARY INCONTINENCE [None]
  - WEIGHT INCREASED [None]
